FAERS Safety Report 4373726-6 (Version None)
Quarter: 2004Q2

REPORT INFORMATION
  Report Type: 
  Country: None (occurrence: None)
  Receive Date: 20040607
  Receipt Date: 20040607
  Transmission Date: 20050107
  Serious: Yes (Other)
  Sender: FDA-Public Use
  Company Number: None

PATIENT
  Age: 54 Year
  Sex: Female

DRUGS (2)
  1. MORPHINE [Suspect]
     Indication: GASTROENTERITIS
     Dosage: 2 MG IM
     Route: 030
  2. PHENERGAN [Suspect]
     Indication: URINARY TRACT INFECTION
     Dosage: 25 MG IM
     Route: 030

REACTIONS (2)
  - PRURITUS [None]
  - URTICARIA [None]
